FAERS Safety Report 17585292 (Version 1)
Quarter: 2020Q1

REPORT INFORMATION
  Report Type: Spontaneous
  Country: FR (occurrence: FR)
  Receive Date: 20200326
  Receipt Date: 20200326
  Transmission Date: 20200409
  Serious: Yes (Hospitalization)
  Sender: FDA-Public Use
  Company Number: FR-MYLANLABS-2020M1032050

PATIENT
  Age: 71 Year
  Sex: Female
  Weight: 79 kg

DRUGS (4)
  1. AMOXICILLINE SODIUM [Suspect]
     Active Substance: AMOXICILLIN SODIUM
     Indication: STREPTOCOCCAL ENDOCARDITIS
     Dosage: 2 GRAM, Q4H
     Route: 042
     Dates: start: 20200117, end: 20200218
  2. FUROSEMIDE. [Suspect]
     Active Substance: FUROSEMIDE
     Indication: OEDEMA
     Dosage: 60 MILLIGRAM, QD
     Route: 048
     Dates: start: 20200118, end: 20200205
  3. FUROSEMIDE. [Suspect]
     Active Substance: FUROSEMIDE
     Indication: OEDEMA
     Dosage: 80 MILLIGRAM, QD
     Route: 042
     Dates: start: 20200206, end: 20200216
  4. FUROSEMIDE. [Suspect]
     Active Substance: FUROSEMIDE
     Dosage: 125 MILLIGRAM, QD
     Route: 042
     Dates: start: 20200217, end: 20200218

REACTIONS (2)
  - Acute kidney injury [Recovering/Resolving]
  - Rash maculo-papular [Recovering/Resolving]

NARRATIVE: CASE EVENT DATE: 20200215
